FAERS Safety Report 18509768 (Version 1)
Quarter: 2020Q4

REPORT INFORMATION
  Report Type: Spontaneous
  Country: ES (occurrence: ES)
  Receive Date: 20201117
  Receipt Date: 20201117
  Transmission Date: 20210114
  Serious: Yes (Other)
  Sender: FDA-Public Use
  Company Number: ES-AUROBINDO-AUR-APL-2020-056321

PATIENT
  Age: 43 Year
  Sex: Female

DRUGS (4)
  1. IBUPROFEN. [Concomitant]
     Active Substance: IBUPROFEN
     Indication: DENTAL IMPLANTATION
     Dosage: UNK, AS NEEDED (PRN)
     Route: 065
  2. CIPROFLOXACIN. [Concomitant]
     Active Substance: CIPROFLOXACIN
     Indication: URINARY TRACT INFECTION
     Dosage: UNK
     Route: 065
  3. AMOXICILLIN+CLAVULANIC ACID [Suspect]
     Active Substance: AMOXICILLIN\CLAVULANIC ACID
     Indication: DENTAL IMPLANTATION
     Dosage: 3 DOSAGE FORM, ONCE A DAY (875/125 MG, 3 TIMES A DAY (TID))
     Route: 065
  4. METAMIZOLE [Concomitant]
     Active Substance: METAMIZOLE
     Indication: DENTAL IMPLANTATION
     Dosage: UNK, AS NEEDED (PRN)
     Route: 065

REACTIONS (3)
  - Oral candidiasis [Unknown]
  - Hepatitis cholestatic [Recovered/Resolved]
  - Vulvovaginal candidiasis [Unknown]
